FAERS Safety Report 25968476 (Version 1)
Quarter: 2025Q4

REPORT INFORMATION
  Report Type: Spontaneous
  Country: EU (occurrence: EU)
  Receive Date: 20251028
  Receipt Date: 20251028
  Transmission Date: 20260117
  Serious: Yes (Other)
  Sender: AUROBINDO
  Company Number: EU-AFSSAPS-AVLY2025000335

PATIENT
  Age: 32 Year
  Sex: Female

DRUGS (3)
  1. PAROXETINE [Suspect]
     Active Substance: PAROXETINE
     Indication: Product used for unknown indication
     Dosage: 20 MILLIGRAM, ONCE A DAY
     Route: 048
  2. CANNABIS SATIVA FLOWERING TOP [Suspect]
     Active Substance: CANNABIS SATIVA FLOWERING TOP
     Indication: Product used for unknown indication
     Dosage: UNK (3-4 JOINTS E D?BUT DE GROSSESSE PUIS 1 ? 2 /J EN FIN DE GROSSESSE)
  3. LEVOTHYROXINE [Suspect]
     Active Substance: LEVOTHYROXINE
     Indication: Product used for unknown indication
     Dosage: UNK (DOSE INCONNUE)
     Route: 048

REACTIONS (4)
  - Drug abuse [Unknown]
  - Alloimmunisation [Recovered/Resolved]
  - Tobacco abuse [Unknown]
  - Maternal exposure during pregnancy [Recovered/Resolved]
